FAERS Safety Report 7878935-7 (Version None)
Quarter: 2011Q4

REPORT INFORMATION
  Report Type: 
  Country: None (occurrence: None)
  Receive Date: 20111101
  Receipt Date: 20111027
  Transmission Date: 20120403
  Serious: Yes (Hospitalization, Other)
  Sender: FDA-Public Use
  Company Number: US-BAYER-201029621NA

PATIENT
  Age: 51 Year
  Sex: Female

DRUGS (4)
  1. BETASERON [Suspect]
     Dosage: 8 MIU, QOD
     Route: 058
  2. BETASERON [Suspect]
     Dosage: 8 MIU, QOD
     Route: 058
     Dates: start: 20111011
  3. BETASERON [Suspect]
     Dosage: UNK
     Route: 058
     Dates: end: 20110824
  4. BETASERON [Suspect]
     Indication: RELAPSING-REMITTING MULTIPLE SCLEROSIS
     Dosage: 6 MIU, QOD
     Route: 058
     Dates: start: 20100701

REACTIONS (7)
  - PNEUMONIA [None]
  - CHEST PAIN [None]
  - PAIN IN EXTREMITY [None]
  - INJECTION SITE MASS [None]
  - INJECTION SITE HAEMATOMA [None]
  - BACK PAIN [None]
  - HEADACHE [None]
